FAERS Safety Report 25540709 (Version 1)
Quarter: 2025Q3

REPORT INFORMATION
  Report Type: Spontaneous
  Country: EU (occurrence: EU)
  Receive Date: 20250710
  Receipt Date: 20250710
  Transmission Date: 20251020
  Serious: Yes (Hospitalization)
  Sender: MYLAN
  Company Number: None

PATIENT
  Age: 24 Year
  Sex: Male

DRUGS (16)
  1. PREGABALIN [Suspect]
     Active Substance: PREGABALIN
     Indication: Product used for unknown indication
     Dates: start: 20250527, end: 20250527
  2. PREGABALIN [Suspect]
     Active Substance: PREGABALIN
     Route: 048
     Dates: start: 20250527, end: 20250527
  3. PREGABALIN [Suspect]
     Active Substance: PREGABALIN
     Route: 048
     Dates: start: 20250527, end: 20250527
  4. PREGABALIN [Suspect]
     Active Substance: PREGABALIN
     Dates: start: 20250527, end: 20250527
  5. DIAZEPAM [Suspect]
     Active Substance: DIAZEPAM
     Indication: Product used for unknown indication
  6. DIAZEPAM [Suspect]
     Active Substance: DIAZEPAM
     Route: 065
  7. DIAZEPAM [Suspect]
     Active Substance: DIAZEPAM
     Route: 065
  8. DIAZEPAM [Suspect]
     Active Substance: DIAZEPAM
  9. MIDOMAFETAMINE [Suspect]
     Active Substance: MIDOMAFETAMINE
     Indication: Product used for unknown indication
     Dates: start: 20250527, end: 20250527
  10. MIDOMAFETAMINE [Suspect]
     Active Substance: MIDOMAFETAMINE
     Route: 048
     Dates: start: 20250527, end: 20250527
  11. MIDOMAFETAMINE [Suspect]
     Active Substance: MIDOMAFETAMINE
     Route: 048
     Dates: start: 20250527, end: 20250527
  12. MIDOMAFETAMINE [Suspect]
     Active Substance: MIDOMAFETAMINE
     Dates: start: 20250527, end: 20250527
  13. COCAINE [Suspect]
     Active Substance: COCAINE
     Indication: Product used for unknown indication
     Dosage: 3 GRAM, QD (3 TO 4 G/D)
     Dates: start: 202205, end: 20250527
  14. COCAINE [Suspect]
     Active Substance: COCAINE
     Dosage: 3 GRAM, QD (3 TO 4 G/D)
     Route: 045
     Dates: start: 202205, end: 20250527
  15. COCAINE [Suspect]
     Active Substance: COCAINE
     Dosage: 3 GRAM, QD (3 TO 4 G/D)
     Route: 045
     Dates: start: 202205, end: 20250527
  16. COCAINE [Suspect]
     Active Substance: COCAINE
     Dosage: 3 GRAM, QD (3 TO 4 G/D)
     Dates: start: 202205, end: 20250527

REACTIONS (4)
  - Altered state of consciousness [Recovered/Resolved]
  - Bradypnoea [Recovered/Resolved]
  - Drug use disorder [Not Recovered/Not Resolved]
  - Substance use disorder [Not Recovered/Not Resolved]

NARRATIVE: CASE EVENT DATE: 20220101
